FAERS Safety Report 10825728 (Version 1)
Quarter: 2015Q1

REPORT INFORMATION
  Report Type: Report from Study
  Country: US (occurrence: US)
  Receive Date: 20150219
  Receipt Date: 20150219
  Transmission Date: 20150721
  Serious: No
  Sender: FDA-Public Use
  Company Number: US-ABBVIE-14K-163-1318104-00

PATIENT
  Sex: Male

DRUGS (2)
  1. CALCIUM [Concomitant]
     Active Substance: CALCIUM
     Indication: PRODUCT USED FOR UNKNOWN INDICATION
  2. HUMIRA [Suspect]
     Active Substance: ADALIMUMAB
     Indication: ANKYLOSING SPONDYLITIS
     Route: 065
     Dates: start: 201405

REACTIONS (4)
  - Cheilitis [Not Recovered/Not Resolved]
  - Stomatitis [Not Recovered/Not Resolved]
  - Noninfective gingivitis [Not Recovered/Not Resolved]
  - Arthralgia [Unknown]

NARRATIVE: CASE EVENT DATE: 2014
